FAERS Safety Report 19239508 (Version 1)
Quarter: 2021Q2

REPORT INFORMATION
  Report Type: Spontaneous
  Country: FR (occurrence: FR)
  Receive Date: 20210510
  Receipt Date: 20210510
  Transmission Date: 20210717
  Serious: Yes (Other)
  Sender: FDA-Public Use
  Company Number: FR-PFIZER INC-2021473260

PATIENT
  Age: 27 Year
  Sex: Male

DRUGS (2)
  1. MYNOCINE [Suspect]
     Active Substance: MINOCYCLINE HYDROCHLORIDE
     Indication: BACTERIAL DISEASE CARRIER
     Dosage: 100 MG, ALTERNATE DAY
     Route: 048
     Dates: start: 2019, end: 201912
  2. ZYVOXID [Suspect]
     Active Substance: LINEZOLID
     Indication: BACTERIAL DISEASE CARRIER
     Dosage: 600 MG, ALTERNATE DAY
     Route: 048
     Dates: start: 20191018, end: 20200131

REACTIONS (2)
  - Off label use [Unknown]
  - Acne [Recovered/Resolved]

NARRATIVE: CASE EVENT DATE: 20191018
